FAERS Safety Report 5258008-2 (Version None)
Quarter: 2007Q1

REPORT INFORMATION
  Report Type: 
  Country: None (occurrence: None)
  Receive Date: 20070307
  Receipt Date: 20070108
  Transmission Date: 20070707
  Serious: No
  Sender: FDA-Public Use
  Company Number: US-GLAXOSMITHKLINE-A0630947A

PATIENT
  Age: 62 Year
  Sex: Female

DRUGS (2)
  1. REQUIP [Suspect]
     Indication: RESTLESS LEGS SYNDROME
     Dosage: 3MG SEE DOSAGE TEXT
     Route: 048
     Dates: start: 20050927
  2. KLONOPIN [Concomitant]

REACTIONS (1)
  - WEIGHT INCREASED [None]
